FAERS Safety Report 4518908-5 (Version None)
Quarter: 2004Q4

REPORT INFORMATION
  Report Type: 
  Country: None (occurrence: None)
  Receive Date: 20041201
  Receipt Date: 20041119
  Transmission Date: 20050328
  Serious: Yes (Hospitalization)
  Sender: FDA-Public Use
  Company Number: 2004UW15424

PATIENT
  Age: 12 Year
  Sex: Male
  Weight: 76.2043 kg

DRUGS (11)
  1. SEROQUEL [Suspect]
     Dosage: 800 MG DAILY PO
     Route: 048
     Dates: start: 20030812, end: 20040701
  2. TEGRETOL [Concomitant]
  3. ATIVAN [Concomitant]
  4. BUSPAR [Concomitant]
  5. STRATTERA [Concomitant]
  6. PROZAC [Concomitant]
  7. ZITHROMAX [Concomitant]
  8. ALBUTEROL [Concomitant]
  9. REMERON [Concomitant]
  10. DDAVP [Concomitant]
  11. DEPAKOTE [Concomitant]

REACTIONS (10)
  - ABNORMAL BEHAVIOUR [None]
  - ASTHENIA [None]
  - BLOOD GLUCOSE INCREASED [None]
  - DIZZINESS [None]
  - FATIGUE [None]
  - HYPERPHAGIA [None]
  - POLYDIPSIA [None]
  - POLYURIA [None]
  - VISION BLURRED [None]
  - WEIGHT INCREASED [None]
